FAERS Safety Report 8127715-6 (Version None)
Quarter: 2012Q1

REPORT INFORMATION
  Report Type: 
  Country: None (occurrence: None)
  Receive Date: 20120210
  Receipt Date: 20120203
  Transmission Date: 20120608
  Serious: Yes (Hospitalization, Other)
  Sender: FDA-Public Use
  Company Number: DE-SANOFI-AVENTIS-2009SA007544

PATIENT
  Age: 58 Year

DRUGS (8)
  1. OXALIPLATIN [Suspect]
     Route: 041
     Dates: start: 20070612, end: 20070612
  2. LEUCOVORIN CALCIUM [Suspect]
     Route: 041
     Dates: start: 20070613, end: 20070613
  3. FLUOROURACIL [Suspect]
     Route: 041
     Dates: start: 20070613, end: 20070613
  4. FLUOROURACIL [Suspect]
     Indication: COLON CANCER
     Route: 041
     Dates: start: 20070205, end: 20070205
  5. OXALIPLATIN [Suspect]
     Indication: COLON CANCER
     Route: 041
     Dates: start: 20070205, end: 20070205
  6. LEUCOVORIN CALCIUM [Suspect]
     Indication: COLON CANCER
     Route: 041
     Dates: start: 20070205, end: 20070205
  7. CETUXIMAB [Suspect]
     Route: 041
     Dates: start: 20070612, end: 20070612
  8. CETUXIMAB [Suspect]
     Indication: COLON CANCER
     Route: 041
     Dates: start: 20070205, end: 20070205

REACTIONS (3)
  - ANGINA PECTORIS [None]
  - CORONARY ARTERY DISEASE [None]
  - CATHETERISATION CARDIAC [None]
